FAERS Safety Report 5152271-4 (Version None)
Quarter: 2006Q4

REPORT INFORMATION
  Report Type: 
  Country: None (occurrence: None)
  Receive Date: 20061109
  Receipt Date: 20061030
  Transmission Date: 20070319
  Serious: Yes (Hospitalization)
  Sender: FDA-Public Use
  Company Number: 2006BI015734

PATIENT
  Age: 39 Year
  Sex: Male
  Weight: 92.9874 kg

DRUGS (1)
  1. AVONEX [Suspect]
     Indication: MULTIPLE SCLEROSIS
     Dosage: 30 UG QW; IM
     Route: 030
     Dates: start: 19990101, end: 20030101

REACTIONS (2)
  - ANKLE FRACTURE [None]
  - FALL [None]
